FAERS Safety Report 23353317 (Version 1)
Quarter: 2023Q4

REPORT INFORMATION
  Report Type: Spontaneous
  Country: BE (occurrence: BE)
  Receive Date: 20231231
  Receipt Date: 20231231
  Transmission Date: 20240110
  Serious: Yes (Other)
  Sender: FDA-Public Use
  Company Number: BE-009507513-2312BEL006482

PATIENT
  Age: 68 Year
  Sex: Female

DRUGS (6)
  1. CARBOPLATIN [Suspect]
     Active Substance: CARBOPLATIN
     Indication: Triple negative breast cancer
     Dosage: UNK UNK, QW, 12 CYCLES
     Route: 065
     Dates: start: 202207, end: 2022
  2. PACLITAXEL [Suspect]
     Active Substance: PACLITAXEL
     Indication: Triple negative breast cancer
     Dosage: QW, 12 CYCLES
     Route: 065
     Dates: start: 202207, end: 2022
  3. EPIRUBICIN [Suspect]
     Active Substance: EPIRUBICIN
     Indication: Triple negative breast cancer
     Dosage: QOW, 4 CYCLES
     Dates: start: 202210
  4. CYCLOPHOSPHAMIDE [Suspect]
     Active Substance: CYCLOPHOSPHAMIDE
     Indication: Triple negative breast cancer
     Dosage: UNK, QOW, 4 CYCLES
     Route: 065
     Dates: start: 202210
  5. PEMBROLIZUMAB [Suspect]
     Active Substance: PEMBROLIZUMAB
     Indication: Triple negative breast cancer
     Dosage: UNK, Q3W, NEOADJUVANT TREATMENT
     Route: 065
     Dates: start: 202207, end: 2022
  6. PEMBROLIZUMAB [Suspect]
     Active Substance: PEMBROLIZUMAB
     Dosage: UNK UNK, Q3W, 9 CYCLES, ADJUVANT TREATMENT
     Dates: end: 2023

REACTIONS (5)
  - Nephritis [Unknown]
  - Colitis [Unknown]
  - Haematotoxicity [Unknown]
  - Breast cancer recurrent [Unknown]
  - Fatigue [Unknown]

NARRATIVE: CASE EVENT DATE: 20220701
